FAERS Safety Report 13658821 (Version 4)
Quarter: 2019Q2

REPORT INFORMATION
  Report Type: Spontaneous
  Country: BR (occurrence: BR)
  Receive Date: 20170616
  Receipt Date: 20190406
  Transmission Date: 20190711
  Serious: Yes (Other)
  Sender: FDA-Public Use
  Company Number: BR-ROCHE-1950008

PATIENT
  Age: 40 Year
  Sex: Male

DRUGS (1)
  1. VISMODEGIB. [Suspect]
     Active Substance: VISMODEGIB
     Indication: BASAL CELL CARCINOMA
     Route: 065
     Dates: start: 201608

REACTIONS (4)
  - Blood triglycerides increased [Recovering/Resolving]
  - Dysgeusia [Unknown]
  - Alopecia [Unknown]
  - Muscle spasms [Unknown]
